FAERS Safety Report 23162032 (Version 1)
Quarter: 2023Q4

REPORT INFORMATION
  Report Type: Spontaneous
  Country: IT (occurrence: IT)
  Receive Date: 20231109
  Receipt Date: 20231109
  Transmission Date: 20240110
  Serious: Yes (Other)
  Sender: FDA-Public Use
  Company Number: IT-MLMSERVICE-20180108-1025447-1

PATIENT
  Age: 18 Year
  Sex: Male

DRUGS (20)
  1. CARBOPLATIN [Suspect]
     Active Substance: CARBOPLATIN
     Indication: Primary mediastinal large B-cell lymphoma
     Dosage: UNK
     Route: 065
  2. CYTARABINE [Suspect]
     Active Substance: CYTARABINE
     Indication: Primary mediastinal large B-cell lymphoma
     Dosage: 150 MG/M2 IN TWO DOSES (DOSES ARE 12 HOURS APART) FOR 1 HOUR ON DAY 4 AND 5: 2 COURSES OF COURSE AA
     Route: 042
  3. CYTARABINE [Suspect]
     Active Substance: CYTARABINE
     Dosage: 3 G/M2 IN TWO DOSES (DOSES ARE 12 HOURS APART) FOR 3 HOURS ON DAY 1 AND 2: 2 COURSES OF COURSE CC
     Route: 042
  4. CYCLOPHOSPHAMIDE [Suspect]
     Active Substance: CYCLOPHOSPHAMIDE
     Indication: Primary mediastinal large B-cell lymphoma
     Dosage: ON DAY 1 AND 2 OF PREPHASE
     Route: 042
  5. DOXORUBICIN [Suspect]
     Active Substance: DOXORUBICIN
     Indication: Primary mediastinal large B-cell lymphoma
     Dosage: 30 MG/M2, UNK
     Route: 042
  6. DEXAMETHASONE [Suspect]
     Active Substance: DEXAMETHASONE
     Indication: Product used for unknown indication
     Dosage: 10 MG/M2 ON DAY 1 AND 2 OF PREPHASE THERAPY (SUBDIVIDED IN 3 DOSES)
     Route: 065
  7. DEXAMETHASONE [Suspect]
     Active Substance: DEXAMETHASONE
     Dosage: RECEIVED 20 MG/M2 IN 2 COURSES OF COURSE CC ON DAY 0-5
     Route: 042
  8. DEXAMETHASONE [Suspect]
     Active Substance: DEXAMETHASONE
     Dosage: ON DAY 1 AND 2 OF PREPHASE THERAPY
     Route: 065
  9. ETOPOSIDE [Suspect]
     Active Substance: ETOPOSIDE
     Indication: Primary mediastinal large B-cell lymphoma
     Dosage: 100 MG/M2 FOR 2 HOURS ON DAY 4 AND 5 (2 COURSES OF COURSE AA AND 2 COURSES OF COURSE CC)
     Route: 042
  10. ETOPOSIDE [Suspect]
     Active Substance: ETOPOSIDE
     Dosage: RECEIVED TWO CYCLES OF R-ICE (RITUXIMAB IFOSFAMIDE, CARBOPLATIN, ETOPOSIDE).
     Route: 042
  11. IFOSFAMIDE [Suspect]
     Active Substance: IFOSFAMIDE
     Indication: Primary mediastinal large B-cell lymphoma
     Dosage: 800 MG/M2 RECEIVED TWO CYCLES OF R-ICE (RITUXIMAB IFOSFAMIDE, CARBOPLATIN, ETOPOSIDE).
     Route: 065
  12. IFOSFAMIDE [Suspect]
     Active Substance: IFOSFAMIDE
     Indication: Primary mediastinal large B-cell lymphoma
     Dosage: 800 MG/M2, UNK
     Route: 042
  13. LEUCOVORIN [Suspect]
     Active Substance: LEUCOVORIN\LEUCOVORIN CALCIUM
     Indication: Primary mediastinal large B-cell lymphoma
     Dosage: 15 MG/M2 AT H 42, 7.5 MG/M2 AT H 48, AND 54 AFTER BEGINNING OF MTX
     Route: 042
  14. METHOTREXATE [Suspect]
     Active Substance: METHOTREXATE
     Dosage: UNK
     Route: 065
  15. METHOTREXATE [Suspect]
     Active Substance: METHOTREXATE
     Indication: Primary mediastinal large B-cell lymphoma
     Dosage: HIGHER DOSE 3 G/M2
     Route: 042
  16. MABTHERA [Suspect]
     Active Substance: RITUXIMAB
     Indication: Primary mediastinal large B-cell lymphoma
     Dosage: 375 MG/M2 (375 MG/M2 ON DAY 0: 2 COURSES OF COURSE AA, 3 COURSES OF COURSE BB AND 2 COURSES OF COURS
     Route: 042
  17. PREDNISOLONE [Suspect]
     Active Substance: PREDNISOLONE
     Indication: Product used for unknown indication
     Dosage: METHOTREXATE, CYTARABINE AND PREDNISOLONE(12MG+30MG+10MG) ON DAY 1: IN PREPHASE THERAPY, 2 COURSE
     Route: 039
  18. RITUXIMAB [Suspect]
     Active Substance: RITUXIMAB
     Indication: Primary mediastinal large B-cell lymphoma
     Dosage: 6 DOSES AT 375 MG/M2
     Route: 042
  19. VINCRISTINE [Suspect]
     Active Substance: VINCRISTINE
     Indication: Primary mediastinal large B-cell lymphoma
     Dosage: 1.5 MG/M2, UNK
     Route: 042
  20. VINDESINE [Suspect]
     Active Substance: VINDESINE
     Indication: Primary mediastinal large B-cell lymphoma
     Dosage: 800 MG/M2 FOR 1 HOUR ON DAY 1 TO 5: COURSE AA (2 COURSES)
     Route: 042

REACTIONS (2)
  - Respiratory failure [Unknown]
  - Dyspnoea [Unknown]
